FAERS Safety Report 7215092-4 (Version None)
Quarter: 2011Q1

REPORT INFORMATION
  Report Type: 
  Country: None (occurrence: None)
  Receive Date: 20110107
  Receipt Date: 20100818
  Transmission Date: 20110831
  Serious: No
  Sender: FDA-Public Use
  Company Number: A0876532A

PATIENT
  Sex: Female

DRUGS (15)
  1. LOVAZA [Suspect]
     Dosage: 4G PER DAY
     Route: 048
     Dates: start: 20100101
  2. INTERFERON [Concomitant]
  3. JANUMET [Concomitant]
  4. PYRIDOXINE HCL [Concomitant]
  5. LANTUS [Concomitant]
  6. INTERFERON [Suspect]
     Route: 065
  7. WELCHOL [Concomitant]
  8. ARTICHOKE [Concomitant]
  9. UNKNOWN MEDICATION [Concomitant]
     Indication: HEPATIC ENZYME
  10. MILK THISTLE [Concomitant]
  11. FOLIC ACID [Concomitant]
  12. VITAMIN B-12 [Concomitant]
  13. UNKNOWN MEDICATION [Concomitant]
     Indication: PANCREATIC DISORDER
  14. TUMERIC [Concomitant]
  15. ANTIOXIDANTS [Concomitant]
     Indication: LIVER DISORDER

REACTIONS (1)
  - PYREXIA [None]
